FAERS Safety Report 18653726 (Version 1)
Quarter: 2020Q4

REPORT INFORMATION
  Report Type: Spontaneous
  Country: ES (occurrence: ES)
  Receive Date: 20201223
  Receipt Date: 20201223
  Transmission Date: 20210114
  Serious: Yes (Hospitalization, Other)
  Sender: FDA-Public Use
  Company Number: ES-SHILPA MEDICARE LIMITED-SML-ES-2020-00686

PATIENT
  Age: 47 Year
  Sex: Female
  Weight: 60 kg

DRUGS (10)
  1. DOCETAXEL, UNKNOWN [Suspect]
     Active Substance: DOCETAXEL
     Indication: GASTRIC CANCER
     Dosage: 80 MG, CYCLIC (ONCE IN EVERY 2 WEEKS)
     Route: 042
     Dates: start: 20200930
  2. DOCETAXEL, UNKNOWN [Suspect]
     Active Substance: DOCETAXEL
     Dosage: 80 MG, CYCLIC (ONCE IN EVERY 2 WEEKS)
     Route: 042
     Dates: start: 20201019, end: 20201019
  3. 5 FLUOROURACIL [Suspect]
     Active Substance: FLUOROURACIL
     Indication: GASTRIC CANCER
     Dosage: 3800 UG, CYCLIC (ONCE IN EVERY 2 WEEKS)
     Route: 042
     Dates: start: 20201019, end: 20201019
  4. 5 FLUOROURACIL [Suspect]
     Active Substance: FLUOROURACIL
     Dosage: 3800 UG, CYCLIC (ONCE IN EVERY 2 WEEKS)
     Route: 042
     Dates: start: 20200930
  5. AVELUMAB [Concomitant]
     Active Substance: AVELUMAB
     Dosage: 602 MG, CYCLIC (ONCE IN EVERY 2 WEEKS)
     Route: 042
     Dates: start: 20201019, end: 20201019
  6. LEUCOVORIN. [Suspect]
     Active Substance: LEUCOVORIN
     Dosage: 330 MG, CYCLIC (ONCE IN EVERY 2 WEEKS)
     Route: 042
     Dates: start: 20200930
  7. OXALIPLATIN. [Suspect]
     Active Substance: OXALIPLATIN
     Dosage: 140 MG, CYCLIC (ONCE IN EVERY 2 WEEKS)
     Route: 042
     Dates: start: 20201019, end: 20201019
  8. OXALIPLATIN. [Suspect]
     Active Substance: OXALIPLATIN
     Indication: GASTRIC CANCER
     Dosage: 140 MG, CYCLIC (ONCE IN EVERY 2 WEEKS)
     Route: 042
     Dates: start: 20200930
  9. LEUCOVORIN. [Suspect]
     Active Substance: LEUCOVORIN
     Indication: GASTRIC CANCER
     Dosage: 330 MG, CYCLIC (ONCE IN EVERY 2 WEEKS)
     Route: 042
     Dates: start: 20201019, end: 20201019
  10. AVELUMAB [Concomitant]
     Active Substance: AVELUMAB
     Indication: GASTRIC CANCER
     Dosage: 602 MG, CYCLIC (ONCE IN EVERY 2 WEEKS)
     Route: 042
     Dates: start: 20200930

REACTIONS (2)
  - Pyrexia [Recovered/Resolved]
  - Urinary tract infection [Recovered/Resolved]

NARRATIVE: CASE EVENT DATE: 20201102
